FAERS Safety Report 12887156 (Version 9)
Quarter: 2017Q2

REPORT INFORMATION
  Report Type: Spontaneous
  Country: US (occurrence: US)
  Receive Date: 20161026
  Receipt Date: 20170620
  Transmission Date: 20170830
  Serious: Yes (Hospitalization)
  Sender: FDA-Public Use
  Company Number: US-ACTELION-A-US2016-144528

PATIENT
  Age: 86 Year
  Sex: Female
  Weight: 61.22 kg

DRUGS (7)
  1. UPTRAVI [Suspect]
     Active Substance: SELEXIPAG
     Indication: PULMONARY ARTERIAL HYPERTENSION
     Dosage: 600 MCG, BID
     Route: 048
  2. UPTRAVI [Suspect]
     Active Substance: SELEXIPAG
     Dosage: 200 MCG, BID
     Route: 048
     Dates: start: 20161011
  3. UPTRAVI [Suspect]
     Active Substance: SELEXIPAG
     Dosage: 400 MCG, BID
     Route: 048
     Dates: start: 20161020
  4. UPTRAVI [Suspect]
     Active Substance: SELEXIPAG
     Dosage: 200 MCG, TID
     Route: 048
  5. COUMADIN [Concomitant]
     Active Substance: WARFARIN SODIUM
  6. UPTRAVI [Suspect]
     Active Substance: SELEXIPAG
     Dosage: 800 MCG, BID
     Route: 048
     Dates: start: 20161219
  7. ADCIRCA [Concomitant]
     Active Substance: TADALAFIL

REACTIONS (17)
  - Neck pain [Unknown]
  - Peripheral swelling [Recovering/Resolving]
  - Arthralgia [Unknown]
  - Dyspnoea [Unknown]
  - Diarrhoea [Unknown]
  - Fluid retention [Unknown]
  - Dehydration [Unknown]
  - Weight increased [Unknown]
  - Feeling abnormal [Unknown]
  - Spinal disorder [Unknown]
  - Headache [Unknown]
  - Pain in extremity [Unknown]
  - Muscle spasms [Unknown]
  - Bone pain [Recovering/Resolving]
  - Abdominal discomfort [Unknown]
  - Myalgia [Unknown]
  - Therapy non-responder [Unknown]

NARRATIVE: CASE EVENT DATE: 20161025
